FAERS Safety Report 16709837 (Version 1)
Quarter: 2019Q3

REPORT INFORMATION
  Report Type: Spontaneous
  Country: FR (occurrence: FR)
  Receive Date: 20190816
  Receipt Date: 20190816
  Transmission Date: 20191004
  Serious: Yes (Disabling)
  Sender: FDA-Public Use
  Company Number: FR-SA-2019SA223668

PATIENT
  Age: 70 Year
  Sex: Female
  Weight: 60 kg

DRUGS (12)
  1. ENDOXAN [Suspect]
     Active Substance: CYCLOPHOSPHAMIDE
     Indication: INVASIVE DUCTAL BREAST CARCINOMA
     Dosage: 948 MG, QD
     Route: 042
     Dates: start: 20190125, end: 20190311
  2. PACLITAXEL. [Suspect]
     Active Substance: PACLITAXEL
     Indication: INVASIVE DUCTAL BREAST CARCINOMA
     Dosage: 126.4 MG, QD
     Route: 042
     Dates: start: 20190125, end: 20190311
  3. ELIQUIS [Concomitant]
     Active Substance: APIXABAN
  4. CORGARD [Concomitant]
     Active Substance: NADOLOL
  5. DEXCHLORPHENIRAMINE MALEATE. [Suspect]
     Active Substance: DEXCHLORPHENIRAMINE MALEATE
     Indication: PROPHYLAXIS
     Dosage: 5 MG, QD
     Route: 042
     Dates: start: 20190125, end: 20190311
  6. METHYLPREDNISOLONE. [Suspect]
     Active Substance: METHYLPREDNISOLONE
     Indication: PROPHYLAXIS
     Dosage: 58 MG, QD
     Route: 042
     Dates: start: 20190125, end: 20190311
  7. ONDANSETRON [Suspect]
     Active Substance: ONDANSETRON
     Indication: PROPHYLAXIS
     Dosage: 8 MG, QD
     Route: 042
     Dates: start: 20190125, end: 20190311
  8. MORPHINE [Concomitant]
     Active Substance: MORPHINE
  9. XANAX [Concomitant]
     Active Substance: ALPRAZOLAM
  10. RANITIDINE HYDROCHLORIDE. [Suspect]
     Active Substance: RANITIDINE HYDROCHLORIDE
     Indication: PROPHYLAXIS
     Dosage: 50 MG, QD
     Route: 042
     Dates: start: 20190125, end: 20190311
  11. FUROSEMIDE. [Concomitant]
     Active Substance: FUROSEMIDE
  12. PREGABALINE [Concomitant]
     Active Substance: PREGABALIN

REACTIONS (3)
  - General physical health deterioration [Not Recovered/Not Resolved]
  - Muscular weakness [Not Recovered/Not Resolved]
  - Back pain [Not Recovered/Not Resolved]

NARRATIVE: CASE EVENT DATE: 20190327
